FAERS Safety Report 5427360-7 (Version None)
Quarter: 2007Q3

REPORT INFORMATION
  Report Type: 
  Country: None (occurrence: None)
  Receive Date: 20070828
  Receipt Date: 20070822
  Transmission Date: 20080115
  Serious: Yes (Other)
  Sender: FDA-Public Use
  Company Number: US-AVENTIS-200716003US

PATIENT
  Sex: Female

DRUGS (1)
  1. KETEK [Suspect]
     Dosage: DOSE: UNK
     Route: 048

REACTIONS (4)
  - CARPAL TUNNEL SYNDROME [None]
  - HEPATITIS [None]
  - JAUNDICE [None]
  - PAIN [None]
